FAERS Safety Report 15308103 (Version 2)
Quarter: 2019Q1

REPORT INFORMATION
  Report Type: Spontaneous
  Country: ES (occurrence: ES)
  Receive Date: 20180822
  Receipt Date: 20190315
  Transmission Date: 20190417
  Serious: Yes (Death)
  Sender: FDA-Public Use
  Company Number: ES-TEVA-2018-ES-945796

PATIENT
  Age: 87 Year
  Sex: Male

DRUGS (8)
  1. SOMNOVIT [Concomitant]
     Active Substance: LOPRAZOLAM MESILATE
  2. SEPTRIN [Concomitant]
     Active Substance: SULFAMETHOXAZOLE\TRIMETHOPRIM
  3. SEGURIL [Concomitant]
     Active Substance: FUROSEMIDE
  4. OMEPRAZOL (2141A) [Concomitant]
     Active Substance: OMEPRAZOLE
  5. ALOPURINOL (318A) [Concomitant]
     Active Substance: ALLOPURINOL
  6. ACETILSALICILICO ACIDO (176A) [Concomitant]
     Active Substance: ASPIRIN
  7. DOLOCATIL [Concomitant]
     Active Substance: ACETAMINOPHEN
  8. METFORMINA (1359A) [Suspect]
     Active Substance: METFORMIN HYDROCHLORIDE
     Indication: DIABETES MELLITUS
     Dosage: 850 / 8H  A?OS
     Route: 048

REACTIONS (1)
  - Lactic acidosis [Fatal]

NARRATIVE: CASE EVENT DATE: 20180710
